FAERS Safety Report 15058265 (Version 1)
Quarter: 2018Q2

REPORT INFORMATION
  Report Type: Spontaneous
  Country: US (occurrence: US)
  Receive Date: 20180604
  Receipt Date: 20180604
  Transmission Date: 20180711
  Serious: Yes (Hospitalization)
  Sender: FDA-Public Use
  Company Number: None

PATIENT
  Age: 80 Year
  Sex: Male
  Weight: 105.73 kg

DRUGS (2)
  1. METOPROLOL. [Suspect]
     Active Substance: METOPROLOL
     Indication: HYPERTENSION
     Route: 048
     Dates: start: 20180228, end: 20180315
  2. NICARDIPINE [Suspect]
     Active Substance: NICARDIPINE
     Route: 042
     Dates: start: 20180314, end: 20180314

REACTIONS (3)
  - Hypertensive crisis [None]
  - Bradycardia [None]
  - Drug hypersensitivity [None]

NARRATIVE: CASE EVENT DATE: 20180314
